FAERS Safety Report 18076615 (Version 1)
Quarter: 2020Q3

REPORT INFORMATION
  Report Type: Spontaneous
  Country: US (occurrence: US)
  Receive Date: 20200727
  Receipt Date: 20200727
  Transmission Date: 20201103
  Serious: Yes (Death, Hospitalization, Other)
  Sender: FDA-Public Use
  Company Number: US-PURDUE-USA-2020-0159488

PATIENT
  Sex: Female

DRUGS (1)
  1. OXYCONTIN [Suspect]
     Active Substance: OXYCODONE HYDROCHLORIDE
     Indication: PAIN
     Dosage: 300 PER MONTH
     Route: 048

REACTIONS (6)
  - Drug dependence [Unknown]
  - Depression [Unknown]
  - Surgery [Unknown]
  - Refusal of treatment by patient [Unknown]
  - Irritability [Unknown]
  - Death [Fatal]
